FAERS Safety Report 5105893-0 (Version None)
Quarter: 2006Q3

REPORT INFORMATION
  Report Type: 
  Country: None (occurrence: None)
  Receive Date: 20060912
  Receipt Date: 20060824
  Transmission Date: 20061208
  Serious: Yes (Other)
  Sender: FDA-Public Use
  Company Number: USA0510111584

PATIENT
  Age: 50 Year
  Sex: Female

DRUGS (1)
  1. HUMULIN N [Suspect]
     Dates: end: 20020101

REACTIONS (5)
  - ABNORMAL BEHAVIOUR [None]
  - ANXIETY [None]
  - FEELING ABNORMAL [None]
  - NERVOUSNESS [None]
  - ROAD TRAFFIC ACCIDENT [None]
